FAERS Safety Report 6603120-6 (Version None)
Quarter: 2010Q1

REPORT INFORMATION
  Report Type: 
  Country: None (occurrence: None)
  Receive Date: 20100226
  Receipt Date: 20100226
  Transmission Date: 20100710
  Serious: Yes (Hospitalization)
  Sender: FDA-Public Use
  Company Number: PHHO2005IT19385

PATIENT
  Sex: Female
  Weight: 59.3 kg

DRUGS (8)
  1. ACLASTA/ZOLEDRONATE T29581+A+SOLINJ [Suspect]
     Indication: OSTEOPOROSIS POSTMENOPAUSAL
     Dosage: 5 MG ONCE A YEAR
     Route: 042
     Dates: start: 20051122
  2. VITAMIN D [Concomitant]
     Indication: OSTEOPOROSIS POSTMENOPAUSAL
  3. CALCIUM [Concomitant]
     Indication: OSTEOPOROSIS POSTMENOPAUSAL
  4. EUTIROX [Concomitant]
     Indication: HYPOTHYROIDISM
     Dates: start: 19920101
  5. LANOXIN [Concomitant]
     Indication: ATRIAL FIBRILLATION
  6. DIURESIX [Concomitant]
     Indication: HYPERTENSION
  7. NAPRILENE [Concomitant]
     Indication: HYPERTENSION
  8. COUMADIN [Concomitant]
     Indication: ATRIAL FIBRILLATION

REACTIONS (8)
  - ACUTE PULMONARY OEDEMA [None]
  - CHEST PAIN [None]
  - CORONARY ARTERIAL STENT INSERTION [None]
  - CORONARY ARTERY DISEASE [None]
  - CORONARY ARTERY STENOSIS [None]
  - DYSPNOEA [None]
  - MYOCARDIAL INFARCTION [None]
  - PAIN IN EXTREMITY [None]
